FAERS Safety Report 9681792 (Version 1)
Quarter: 2013Q4

REPORT INFORMATION
  Report Type: Spontaneous
  Country: US (occurrence: US)
  Receive Date: 20131111
  Receipt Date: 20131111
  Transmission Date: 20140711
  Serious: Yes (Other)
  Sender: FDA-Public Use
  Company Number: US-PFIZER INC-2013319766

PATIENT
  Age: 12 Year
  Sex: Female
  Weight: 54.42 kg

DRUGS (11)
  1. NEURONTIN [Suspect]
     Indication: NEURALGIA
     Dosage: 100 MG, 3X/DAY
     Dates: start: 20130101
  2. NEURONTIN [Suspect]
     Dosage: 200 MG, 3X/DAY
     Dates: start: 201301
  3. NEURONTIN [Suspect]
     Dosage: 300 MG, 3X/DAY
     Dates: start: 201301
  4. NEURONTIN [Suspect]
     Dosage: 400 MG, 3X/DAY
     Dates: start: 201301, end: 201303
  5. LYRICA [Suspect]
     Indication: NEURALGIA
     Dosage: 25MG IN MORNING, 50MG IN THE AFTERNOON AND 25MG IN NIGHT
     Dates: start: 201305
  6. LYRICA [Suspect]
     Dosage: 25 MG, 2X/DAY
     Dates: start: 2013, end: 201309
  7. ZOLOFT [Suspect]
     Indication: ANXIETY
     Dosage: 12.5 MG, DAILY
     Dates: start: 20131102, end: 20131105
  8. CELEXA [Suspect]
     Indication: ANXIETY
     Dosage: 20 MG, DAILY
     Dates: start: 201305
  9. CELEXA [Suspect]
     Indication: NEURALGIA
     Dosage: 30 MG, DAILY
     Dates: start: 2013
  10. CELEXA [Suspect]
     Dosage: 10 MG, DAILY
     Dates: start: 2013
  11. CELEXA [Suspect]
     Dosage: UNK
     Dates: end: 201309

REACTIONS (8)
  - Off label use [Unknown]
  - Suicidal ideation [Recovered/Resolved]
  - Hallucination [Not Recovered/Not Resolved]
  - Thinking abnormal [Recovered/Resolved]
  - Hostility [Recovered/Resolved]
  - Drug ineffective [Unknown]
  - Drug intolerance [Unknown]
  - Metabolic disorder [Unknown]
